FAERS Safety Report 7212333-4 (Version None)
Quarter: 2010Q4

REPORT INFORMATION
  Report Type: 
  Country: None (occurrence: None)
  Receive Date: 20101227
  Receipt Date: 20101217
  Transmission Date: 20110411
  Serious: Yes (Life-Threatening, Hospitalization)
  Sender: FDA-Public Use
  Company Number: 023881

PATIENT
  Sex: Female
  Weight: 89 kg

DRUGS (8)
  1. KEPPRA [Suspect]
     Indication: EPILEPSY
     Dosage: 1250 MG BID, IN THE MORNING AND THE EVENING, ORAL
     Route: 048
  2. TEGRETOL [Suspect]
     Indication: EPILEPSY
     Dosage: 400 MG BID, IN THE MORNING AND THE EVENING, ORAL
     Route: 048
  3. LAMICTAL [Suspect]
     Indication: EPILEPSY
     Dosage: 550 MG, IN THE MORNING; 300 MG IN THE EVENING, ORAL; 300 MG BID, ORAL
     Route: 048
     Dates: start: 20101003
  4. LAMICTAL [Suspect]
     Indication: EPILEPSY
     Dosage: 550 MG, IN THE MORNING; 300 MG IN THE EVENING, ORAL; 300 MG BID, ORAL
     Route: 048
     Dates: start: 20101003
  5. RIVOTRIL (RIVOTRIL) [Suspect]
     Indication: EPILEPSY
     Dosage: SEE IMAGE: ORAL
     Dates: start: 20101003, end: 20101001
  6. RIVOTRIL (RIVOTRIL) [Suspect]
     Indication: EPILEPSY
     Dosage: SEE IMAGE: ORAL
     Dates: start: 20101001, end: 20101101
  7. RIVOTRIL (RIVOTRIL) [Suspect]
     Indication: EPILEPSY
     Dosage: SEE IMAGE: ORAL
     Dates: start: 20101003
  8. RIVOTRIL (RIVOTRIL) [Suspect]
     Indication: EPILEPSY
     Dosage: SEE IMAGE: ORAL
     Dates: start: 20101101

REACTIONS (14)
  - ANTICONVULSANT DRUG LEVEL DECREASED [None]
  - BLOOD CALCIUM DECREASED [None]
  - CONVULSION [None]
  - DECREASED ACTIVITY [None]
  - DRUG CLEARANCE INCREASED [None]
  - DRUG EXPOSURE DURING PREGNANCY [None]
  - GRAND MAL CONVULSION [None]
  - HAEMOGLOBIN DECREASED [None]
  - HEART RATE INCREASED [None]
  - INCORRECT DOSE ADMINISTERED [None]
  - LOSS OF CONSCIOUSNESS [None]
  - PREGNANCY [None]
  - SOMNOLENCE [None]
  - TREATMENT NONCOMPLIANCE [None]
